FAERS Safety Report 20784214 (Version 1)
Quarter: 2022Q2

REPORT INFORMATION
  Report Type: Spontaneous
  Country: US (occurrence: US)
  Receive Date: 20220504
  Receipt Date: 20220504
  Transmission Date: 20220720
  Serious: No
  Sender: FDA-Public Use
  Company Number: US-PFIZER INC-202200650908

PATIENT

DRUGS (4)
  1. XANAX [Suspect]
     Active Substance: ALPRAZOLAM
     Indication: Agoraphobia
     Dosage: UNK
  2. XANAX [Suspect]
     Active Substance: ALPRAZOLAM
     Indication: Post-traumatic stress disorder
  3. XANAX [Suspect]
     Active Substance: ALPRAZOLAM
     Indication: Major depression
  4. XANAX [Suspect]
     Active Substance: ALPRAZOLAM
     Indication: Insomnia

REACTIONS (4)
  - Vomiting [Unknown]
  - Insomnia [Unknown]
  - Anxiety [Unknown]
  - Migraine [Unknown]
